FAERS Safety Report 6737612-6 (Version None)
Quarter: 2010Q2

REPORT INFORMATION
  Report Type: 
  Country: None (occurrence: None)
  Receive Date: 20100524
  Receipt Date: 20100421
  Transmission Date: 20101027
  Serious: No
  Sender: FDA-Public Use
  Company Number: US-BAYER-201014633BCC

PATIENT
  Age: 35 Year
  Sex: Female
  Weight: 61 kg

DRUGS (2)
  1. ALEVE (CAPLET) [Suspect]
     Indication: MALAISE
     Dosage: 660 MG WAS TAKEN ON 20-APR AND MORE 440 MG WAS TAKEN ON 21-APR-2010
     Route: 048
     Dates: start: 20100420, end: 20100421
  2. TYLENOL (CAPLET) [Suspect]
     Indication: DRUG USE FOR UNKNOWN INDICATION
     Dosage: 2 TABLESPOONS THREE TIMES WITHIN 24 HOURS (1000 MG PER OUNCE)
     Route: 048
     Dates: start: 20100420, end: 20100421

REACTIONS (1)
  - HEADACHE [None]
